FAERS Safety Report 6945466-8 (Version None)
Quarter: 2010Q3

REPORT INFORMATION
  Report Type: 
  Country: None (occurrence: None)
  Receive Date: 20100827
  Receipt Date: 20100816
  Transmission Date: 20110219
  Serious: Yes (Other)
  Sender: FDA-Public Use
  Company Number: US-SANOFI-AVENTIS-2010SA049056

PATIENT
  Sex: Male

DRUGS (5)
  1. PLAVIX [Suspect]
     Route: 048
     Dates: start: 20000101, end: 20100701
  2. PLAVIX [Interacting]
     Route: 048
     Dates: start: 20000101, end: 20100701
  3. PREVACID [Interacting]
     Indication: GASTROINTESTINAL DISORDER
     Route: 065
     Dates: start: 19980101, end: 20100401
  4. PANTOPRAZOLE [Concomitant]
     Dates: start: 20100401
  5. LOVENOX [Concomitant]
     Route: 065
     Dates: end: 20100701

REACTIONS (4)
  - CAROTID ARTERY OCCLUSION [None]
  - CEREBROVASCULAR ACCIDENT [None]
  - CORONARY ARTERY OCCLUSION [None]
  - DRUG INTERACTION [None]
